FAERS Safety Report 11103887 (Version 2)
Quarter: 2025Q2

REPORT INFORMATION
  Report Type: Report from Study
  Country: US (occurrence: US)
  Receive Date: 20150511
  Receipt Date: 20250611
  Transmission Date: 20250717
  Serious: Yes (Other)
  Sender: ASTELLAS
  Company Number: US-ASTELLAS-2015US015750

PATIENT

DRUGS (1)
  1. ERLOTINIB [Suspect]
     Active Substance: ERLOTINIB
     Indication: Colorectal cancer
     Route: 048

REACTIONS (11)
  - Incarcerated hernia [Unknown]
  - Dry eye [Unknown]
  - Dry mouth [Unknown]
  - Pruritus [Unknown]
  - Eye pruritus [Unknown]
  - Oral pruritus [Unknown]
  - Diarrhoea [Unknown]
  - Rash [Unknown]
  - Fatigue [Unknown]
  - Nausea [Unknown]
  - Adverse event [Unknown]
